FAERS Safety Report 20936680 (Version 2)
Quarter: 2022Q3

REPORT INFORMATION
  Report Type: Spontaneous
  Country: US (occurrence: US)
  Receive Date: 20220609
  Receipt Date: 20220718
  Transmission Date: 20221027
  Serious: Yes (Other)
  Sender: FDA-Public Use
  Company Number: US-JNJFOC-20220606609

PATIENT
  Age: 43 Year
  Sex: Female

DRUGS (8)
  1. ELMIRON [Suspect]
     Active Substance: PENTOSAN POLYSULFATE SODIUM
     Indication: Cystitis interstitial
     Route: 048
     Dates: start: 201104, end: 2014
  2. ELMIRON [Suspect]
     Active Substance: PENTOSAN POLYSULFATE SODIUM
     Route: 048
     Dates: start: 2014, end: 202107
  3. KLONOPIN [Concomitant]
     Active Substance: CLONAZEPAM
     Indication: Somnambulism
     Dates: start: 2015
  4. IMITREX [Concomitant]
     Active Substance: SUMATRIPTAN SUCCINATE
     Indication: Migraine
     Dates: start: 2014
  5. VIVELLE-DOT [Concomitant]
     Active Substance: ESTRADIOL
     Indication: Menopausal symptoms
     Dates: start: 2013
  6. VIVELLE-DOT [Concomitant]
     Active Substance: ESTRADIOL
     Indication: Menopausal symptoms
  7. URELLE [Concomitant]
     Active Substance: HYOSCYAMINE SULFATE\METHENAMINE\METHYLENE BLUE\PHENYL SALICYLATE\SODIUM PHOSPHATE, MONOBASIC, MONOHY
     Indication: Cystitis interstitial
     Dates: start: 2011
  8. FLUNISOLIDE [Concomitant]
     Active Substance: FLUNISOLIDE
     Indication: Multiple allergies
     Dates: start: 2011

REACTIONS (2)
  - Maculopathy [Unknown]
  - Off label use [Unknown]

NARRATIVE: CASE EVENT DATE: 20110401
